FAERS Safety Report 7641951-4 (Version None)
Quarter: 2011Q3

REPORT INFORMATION
  Report Type: 
  Country: None (occurrence: None)
  Receive Date: 20110728
  Receipt Date: 20110718
  Transmission Date: 20111222
  Serious: Yes (Other)
  Sender: FDA-Public Use
  Company Number: US-BAYER-2011-063069

PATIENT
  Sex: Male

DRUGS (1)
  1. ALEVE (CAPLET) [Suspect]
     Dosage: 880 MG, UNK
     Route: 048
     Dates: start: 20110714

REACTIONS (2)
  - HAEMORRHAGE [None]
  - ABDOMINAL DISTENSION [None]
